FAERS Safety Report 19097597 (Version 1)
Quarter: 2021Q2

REPORT INFORMATION
  Report Type: Spontaneous
  Country: US (occurrence: US)
  Receive Date: 20210405
  Receipt Date: 20210405
  Transmission Date: 20210717
  Serious: No
  Sender: FDA-Public Use
  Company Number: None

PATIENT
  Age: 48 Year
  Sex: Female
  Weight: 49.5 kg

DRUGS (7)
  1. ADRENAL SUPPORT [Concomitant]
     Active Substance: HOMEOPATHICS
  2. MEDICAL GRADE MANUKA HONEY SINUS CLEANSER [Suspect]
     Active Substance: HERBALS\HONEY
     Indication: SINUSITIS
     Dosage: ?          OTHER STRENGTH:MEASURED SPRAYS;QUANTITY:2 SPRAY(S);?
     Route: 055
     Dates: start: 20210325, end: 20210405
  3. DAO [Concomitant]
  4. MAGNESIUM [Concomitant]
     Active Substance: MAGNESIUM
  5. GLUTAMINE [Concomitant]
     Active Substance: GLUTAMINE
  6. VITAMIN B [Concomitant]
     Active Substance: VITAMIN B
  7. OMEGA OILS [Concomitant]

REACTIONS (3)
  - Recalled product administered [None]
  - Hypersensitivity [None]
  - Sneezing [None]

NARRATIVE: CASE EVENT DATE: 20210326
